FAERS Safety Report 6843571-8 (Version None)
Quarter: 2010Q3

REPORT INFORMATION
  Report Type: 
  Country: None (occurrence: None)
  Receive Date: 20100712
  Receipt Date: 20100701
  Transmission Date: 20110219
  Serious: Yes (Other)
  Sender: FDA-Public Use
  Company Number: 2010EU003215

PATIENT
  Sex: Female

DRUGS (3)
  1. TACROLIMUS [Suspect]
     Indication: RENAL TRANSPLANT
  2. AZATHIOPRINE [Concomitant]
  3. PREDNISOLONE [Concomitant]
     Indication: IMMUNOSUPPRESSION

REACTIONS (10)
  - ABORTION INDUCED [None]
  - CAESAREAN SECTION [None]
  - DRUG EXPOSURE DURING PREGNANCY [None]
  - INTRA-UTERINE DEATH [None]
  - MICROANGIOPATHIC HAEMOLYTIC ANAEMIA [None]
  - PRE-ECLAMPSIA [None]
  - PREGNANCY [None]
  - PREMATURE LABOUR [None]
  - THROMBOTIC THROMBOCYTOPENIC PURPURA [None]
  - TRANSPLANT REJECTION [None]
